FAERS Safety Report 23786822 (Version 8)
Quarter: 2025Q1

REPORT INFORMATION
  Report Type: Report from Study
  Country: CA (occurrence: CA)
  Receive Date: 20240426
  Receipt Date: 20250328
  Transmission Date: 20250408
  Serious: Yes (Hospitalization, Other)
  Sender: TAKEDA
  Company Number: CA-TAKEDA-2023TUS110610

PATIENT
  Sex: Female

DRUGS (6)
  1. VEDOLIZUMAB [Suspect]
     Active Substance: VEDOLIZUMAB
     Indication: Crohn^s disease
  2. VEDOLIZUMAB [Suspect]
     Active Substance: VEDOLIZUMAB
  3. VEDOLIZUMAB [Suspect]
     Active Substance: VEDOLIZUMAB
  4. VEDOLIZUMAB [Suspect]
     Active Substance: VEDOLIZUMAB
  5. VEDOLIZUMAB [Suspect]
     Active Substance: VEDOLIZUMAB
  6. VEDOLIZUMAB [Suspect]
     Active Substance: VEDOLIZUMAB

REACTIONS (22)
  - Bile duct stone [Unknown]
  - Crohn^s disease [Unknown]
  - Uveitis [Unknown]
  - Diarrhoea [Recovering/Resolving]
  - Malaise [Not Recovered/Not Resolved]
  - Fall [Unknown]
  - Shoulder fracture [Unknown]
  - Eye swelling [Unknown]
  - Pain [Recovering/Resolving]
  - Mood altered [Unknown]
  - Product dose omission issue [Unknown]
  - Depressed mood [Unknown]
  - Abdominal pain [Unknown]
  - Dizziness [Unknown]
  - Epistaxis [Unknown]
  - Ear pain [Unknown]
  - Abdominal distension [Unknown]
  - Headache [Unknown]
  - Fatigue [Unknown]
  - Oropharyngeal pain [Recovering/Resolving]
  - Nausea [Recovering/Resolving]
  - Pruritus [Unknown]
